FAERS Safety Report 24260288 (Version 2)
Quarter: 2024Q3

REPORT INFORMATION
  Report Type: Spontaneous
  Country: CN (occurrence: CN)
  Receive Date: 20240828
  Receipt Date: 20240909
  Transmission Date: 20241017
  Serious: Yes (Other)
  Sender: NOVARTIS
  Company Number: CN-002147023-NVSC2024CN173657

PATIENT
  Age: 7 Year
  Sex: Male
  Weight: 26 kg

DRUGS (3)
  1. TRILEPTAL [Suspect]
     Active Substance: OXCARBAZEPINE
     Indication: Epilepsy
     Dosage: 1.5 DOSAGE FORM, BID (1.5 TABLETS AT A TIME)
     Route: 048
     Dates: start: 202402
  2. TRILEPTAL [Suspect]
     Active Substance: OXCARBAZEPINE
     Indication: Epilepsy
     Dosage: UNK
     Route: 065
     Dates: start: 2022
  3. PERAMPANEL [Concomitant]
     Active Substance: PERAMPANEL
     Indication: Epilepsy
     Dosage: 3 DOSAGE FORM, QD
     Route: 065

REACTIONS (4)
  - Xerophthalmia [Recovered/Resolved]
  - Stomatitis [Recovered/Resolved]
  - Eye movement disorder [Recovered/Resolved]
  - Hypersensitivity [Unknown]
